FAERS Safety Report 19851702 (Version 1)
Quarter: 2021Q3

REPORT INFORMATION
  Report Type: Spontaneous
  Country: US (occurrence: US)
  Receive Date: 20210917
  Receipt Date: 20210917
  Transmission Date: 20211014
  Serious: No
  Sender: FDA-Public Use
  Company Number: US-BEH-2021135994

PATIENT
  Age: 60 Year
  Sex: Female
  Weight: 72 kg

DRUGS (3)
  1. HIZENTRA [Suspect]
     Active Substance: HUMAN IMMUNOGLOBULIN G
     Dosage: 14 GRAM, QW
     Route: 058
     Dates: start: 20210905, end: 20210909
  2. HIZENTRA [Suspect]
     Active Substance: HUMAN IMMUNOGLOBULIN G
     Indication: HYPOGAMMAGLOBULINAEMIA
     Dosage: 14 GRAM, QW
     Route: 058
     Dates: start: 20210905
  3. HIZENTRA [Suspect]
     Active Substance: HUMAN IMMUNOGLOBULIN G
     Dosage: 14 GRAM, QW
     Route: 058
     Dates: start: 20210905, end: 20210909

REACTIONS (16)
  - Infusion site erythema [Not Recovered/Not Resolved]
  - Infusion site discolouration [Not Recovered/Not Resolved]
  - Injection site extravasation [Not Recovered/Not Resolved]
  - Infusion site erythema [Recovering/Resolving]
  - Infusion site warmth [Not Recovered/Not Resolved]
  - Arthralgia [Recovering/Resolving]
  - Infusion site irritation [Not Recovered/Not Resolved]
  - Headache [Recovering/Resolving]
  - Infusion site urticaria [Recovering/Resolving]
  - Infusion site swelling [Recovering/Resolving]
  - Infusion site swelling [Not Recovered/Not Resolved]
  - Infusion site pain [Recovering/Resolving]
  - Chest pain [Recovered/Resolved]
  - Feeling jittery [Recovered/Resolved]
  - Chest pain [Recovering/Resolving]
  - Arthralgia [Recovered/Resolved]

NARRATIVE: CASE EVENT DATE: 20210905
